FAERS Safety Report 9675953 (Version 2)
Quarter: 2013Q4

REPORT INFORMATION
  Report Type: Report from Study
  Country: GB (occurrence: GB)
  Receive Date: 20131107
  Receipt Date: 20131211
  Transmission Date: 20140711
  Serious: Yes (Death)
  Sender: FDA-Public Use
  Company Number: GB-UCBSA-102288

PATIENT
  Age: 65 Year
  Sex: Male

DRUGS (1)
  1. CERTOLIZUMAB [Suspect]
     Indication: RHEUMATOID ARTHRITIS
     Route: 058
     Dates: start: 20120528

REACTIONS (5)
  - Myocardial infarction [Fatal]
  - Chronic obstructive pulmonary disease [Fatal]
  - Pulmonary embolism [Fatal]
  - Essential hypertension [Fatal]
  - Aortic aneurysm [Fatal]
